FAERS Safety Report 7556568-X (Version None)
Quarter: 2011Q2

REPORT INFORMATION
  Report Type: 
  Country: None (occurrence: None)
  Receive Date: 20110620
  Receipt Date: 20110607
  Transmission Date: 20111010
  Serious: Yes (Other)
  Sender: FDA-Public Use
  Company Number: US-ELI_LILLY_AND_COMPANY-US201010001183

PATIENT
  Sex: Female

DRUGS (20)
  1. VITAMIN D [Concomitant]
     Dosage: 2000 IU, QD
  2. VICODIN [Concomitant]
     Indication: ARTHRALGIA
     Dosage: 5 MG, PRN
  3. FORTEO [Suspect]
     Dosage: 20 UG, DAILY (1/D)
     Route: 058
  4. ASCORBIC ACID [Concomitant]
  5. DICLOFENAC SODIUM [Concomitant]
     Dosage: 75 MG, BID
  6. ATENOLOL [Concomitant]
     Dosage: 25 MG, EVERY 6 HRS
  7. NORVASC [Concomitant]
     Dosage: 2.5 MG, QD
  8. TYLENOL (CAPLET) [Concomitant]
     Dosage: 2 DF, EACH EVENING
  9. MUCINEX [Concomitant]
     Dosage: 400 MG, QD
  10. FORTEO [Suspect]
     Dosage: 20 UG, QD
     Route: 058
  11. VITAMIN B COMPLEX CAP [Concomitant]
  12. HYDROCHLOROTHIAZIDE [Concomitant]
     Dosage: 25 MG, QD
  13. ZOMIG [Concomitant]
     Indication: MIGRAINE
     Dosage: UNK, PRN
  14. LACTOBACILLUS NOS [Concomitant]
  15. COQ-10 [Concomitant]
  16. VIACTIV                            /00751501/ [Concomitant]
     Indication: MINERAL SUPPLEMENTATION
  17. FORTEO [Suspect]
     Indication: OSTEOPOROSIS
     Dosage: 20 UG, DAILY (1/D)
     Route: 058
     Dates: start: 20091115
  18. ALFALFA [Concomitant]
  19. MULTI-VITAMIN [Concomitant]
  20. LOVASTATIN [Concomitant]
     Indication: BLOOD CHOLESTEROL
     Dosage: 40 MG, QD

REACTIONS (35)
  - FATIGUE [None]
  - FUNGAL INFECTION [None]
  - FOOT FRACTURE [None]
  - FEELING ABNORMAL [None]
  - ORAL DISORDER [None]
  - PAIN IN EXTREMITY [None]
  - VOMITING [None]
  - TOOTH DISORDER [None]
  - WOUND [None]
  - ARTIFICIAL CROWN PROCEDURE [None]
  - SOFT TISSUE DISORDER [None]
  - NAIL DISCOLOURATION [None]
  - INFLAMMATION [None]
  - PAIN [None]
  - DIARRHOEA [None]
  - SKIN EXFOLIATION [None]
  - LIMB INJURY [None]
  - BACTERIAL INFECTION [None]
  - SKIN HYPERTROPHY [None]
  - DRY SKIN [None]
  - DRUG INEFFECTIVE [None]
  - DENTAL CARIES [None]
  - MUSCLE SPASMS [None]
  - NAIL DISORDER [None]
  - HYPERSENSITIVITY [None]
  - STAPHYLOCOCCAL INFECTION [None]
  - TOOTH EXTRACTION [None]
  - FRACTURE NONUNION [None]
  - SWELLING [None]
  - ERYTHEMA [None]
  - PRURITUS GENERALISED [None]
  - FEMUR FRACTURE [None]
  - LACERATION [None]
  - PURULENCE [None]
  - SINUSITIS [None]
